FAERS Safety Report 7715254-3 (Version None)
Quarter: 2011Q3

REPORT INFORMATION
  Report Type: 
  Country: None (occurrence: None)
  Receive Date: 20110829
  Receipt Date: 20110823
  Transmission Date: 20111222
  Serious: Yes (Other)
  Sender: FDA-Public Use
  Company Number: US-SANOFI-AVENTIS-2011SA054244

PATIENT
  Sex: Female

DRUGS (3)
  1. TAXOTERE [Suspect]
     Indication: BREAST CANCER
     Route: 041
  2. DEXAMETHASONE [Concomitant]
  3. TAXOTERE [Suspect]
     Route: 041

REACTIONS (4)
  - CAPILLARY LEAK SYNDROME [None]
  - LUNG INFILTRATION [None]
  - HYPOXIA [None]
  - PYREXIA [None]
